FAERS Safety Report 9140888 (Version 2)
Quarter: 2013Q1

REPORT INFORMATION
  Report Type: Spontaneous
  Country: JP (occurrence: JP)
  Receive Date: 20130305
  Receipt Date: 20130319
  Transmission Date: 20140127
  Serious: Yes (Other)
  Sender: FDA-Public Use
  Company Number: JP-OTSUKA-JP-2013-10550

PATIENT
  Age: 82 Year
  Sex: Male

DRUGS (4)
  1. SAMSCA [Suspect]
     Dosage: 7.5 MG MILLIGRAM(S), QD
     Route: 048
     Dates: start: 20130122, end: 20130208
  2. LASIX [Suspect]
     Dosage: 80 MG MILLIGRAM(S), QD
     Route: 048
  3. ALDACTONE A [Suspect]
     Dosage: 50 MG MILLIGRAM(S), QD
     Route: 048
  4. DIGOSIN [Concomitant]
     Route: 048

REACTIONS (2)
  - Hypernatraemia [Recovered/Resolved]
  - Dehydration [Recovered/Resolved]
